FAERS Safety Report 16349666 (Version 1)
Quarter: 2019Q2

REPORT INFORMATION
  Report Type: Spontaneous
  Country: FI (occurrence: FI)
  Receive Date: 20190523
  Receipt Date: 20190523
  Transmission Date: 20190711
  Serious: Yes (Hospitalization, Other)
  Sender: FDA-Public Use
  Company Number: FI-PFIZER INC-2019211605

PATIENT
  Age: 94 Year
  Sex: Female

DRUGS (1)
  1. TEMESTA (LORAZEPAM) [Suspect]
     Active Substance: LORAZEPAM
     Dosage: 0.5 DF, UNK

REACTIONS (9)
  - Blindness [Unknown]
  - Anger [Unknown]
  - Insomnia [Unknown]
  - Deafness [Unknown]
  - Cardiac failure [Unknown]
  - Abnormal behaviour [Unknown]
  - Dyspnoea [Unknown]
  - Suicidal ideation [Unknown]
  - Middle insomnia [Unknown]
